FAERS Safety Report 14228575 (Version 1)
Quarter: 2017Q4

REPORT INFORMATION
  Report Type: Spontaneous
  Country: US (occurrence: None)
  Receive Date: 20171124
  Receipt Date: 20171124
  Transmission Date: 20180321
  Serious: No
  Sender: FDA-Public Use
  Company Number: None

PATIENT
  Age: 29 Year
  Sex: Male

DRUGS (1)
  1. TALTZ [Suspect]
     Active Substance: IXEKIZUMAB
     Indication: PSORIASIS
     Dosage: DATES OF USE: 08/24/2017 TO ON HOLD??80MG/ML INJ Q2 WEEKS SUB-Q
     Route: 058
     Dates: start: 20170824

REACTIONS (4)
  - Eye disorder [None]
  - Dyspnoea [None]
  - Swelling face [None]
  - Rhinorrhoea [None]

NARRATIVE: CASE EVENT DATE: 20171017
